FAERS Safety Report 17893832 (Version 3)
Quarter: 2020Q4

REPORT INFORMATION
  Report Type: Report from Study
  Country: US (occurrence: US)
  Receive Date: 20200615
  Receipt Date: 20201007
  Transmission Date: 20210113
  Serious: No
  Sender: FDA-Public Use
  Company Number: NVSC2020US165746

PATIENT
  Sex: Female

DRUGS (1)
  1. COSENTYX [Suspect]
     Active Substance: SECUKINUMAB
     Indication: PSORIASIS
     Dosage: 300 MG (ONCE WEEKLY FOR 5 WEEKS (LOADING), THEN ONCE EVERY 4 WEEKS (MAINTENANCE))
     Route: 058
     Dates: start: 20200602

REACTIONS (4)
  - Abdominal discomfort [Recovered/Resolved]
  - Skin discolouration [Unknown]
  - Abdominal pain upper [Recovered/Resolved]
  - Psoriasis [Unknown]
